FAERS Safety Report 5872530-7 (Version None)
Quarter: 2008Q3

REPORT INFORMATION
  Report Type: 
  Country: None (occurrence: None)
  Receive Date: 20080902
  Receipt Date: 20080818
  Transmission Date: 20090109
  Serious: Yes (Hospitalization)
  Sender: FDA-Public Use
  Company Number: 2008-02373

PATIENT
  Age: 72 Year
  Sex: Female

DRUGS (9)
  1. VELCADE [Suspect]
     Indication: MULTIPLE MYELOMA
     Dosage: 1.6 MG/M2, INTRAVENOUS
     Route: 042
     Dates: start: 20080611, end: 20080618
  2. CRESTOR [Suspect]
  3. MOVICOL (SODIUM BICARBONATE, SODIUM CHLORIDE, MACROGOL, POTASSIUM CHLO [Concomitant]
  4. MOTILIUM [Concomitant]
  5. ACETAMINOPHEN [Concomitant]
  6. DIFINE (DICLOFENAC SODIUM) [Concomitant]
  7. SOLPADEINE (CODEINE PHOSPHATE, CAFFEINE, PARACETAMOL) [Concomitant]
  8. NORMISON (TEMAZEPAM) [Concomitant]
  9. NU-SEALS ASPIRIN (ACETYLSALICYLIC ACID) [Concomitant]

REACTIONS (3)
  - ATRIAL FIBRILLATION [None]
  - CARDIAC FAILURE CONGESTIVE [None]
  - PAIN [None]
